FAERS Safety Report 7909004-5 (Version None)
Quarter: 2011Q4

REPORT INFORMATION
  Report Type: 
  Country: None (occurrence: None)
  Receive Date: 20111110
  Receipt Date: 20111110
  Transmission Date: 20120403
  Serious: Yes (Life-Threatening)
  Sender: FDA-Public Use
  Company Number: None

PATIENT
  Age: 63 Year
  Sex: Male
  Weight: 93 kg

DRUGS (1)
  1. FERUMOXYTOL [Suspect]
     Indication: BLOOD IRON DECREASED
     Dosage: 510 MG ONCE IV
     Route: 042
     Dates: start: 20101102, end: 20101102

REACTIONS (4)
  - NAUSEA [None]
  - HYPOTENSION [None]
  - VOMITING [None]
  - ANGIOEDEMA [None]
